FAERS Safety Report 5654151-4 (Version None)
Quarter: 2008Q1

REPORT INFORMATION
  Report Type: 
  Country: None (occurrence: None)
  Receive Date: 20080306
  Receipt Date: 20080213
  Transmission Date: 20080703
  Serious: No
  Sender: FDA-Public Use
  Company Number: US-BOEHRINGER INGELHEIM GMBH, GERMANY-2007-BP-26415BP

PATIENT
  Sex: Female

DRUGS (6)
  1. SPIRIVA [Suspect]
     Indication: CHRONIC OBSTRUCTIVE PULMONARY DISEASE
     Dosage: 1 DAILY
     Dates: end: 20060801
  2. SPIRIVA [Suspect]
     Indication: DYSPNOEA
  3. PROTONIX [Concomitant]
  4. AVAPRO [Concomitant]
  5. LORATADINE [Concomitant]
  6. DUONEB [Concomitant]

REACTIONS (4)
  - ABDOMINAL DISTENSION [None]
  - DRUG INTOLERANCE [None]
  - DRY MOUTH [None]
  - NAUSEA [None]
